FAERS Safety Report 7718003-8 (Version None)
Quarter: 2011Q3

REPORT INFORMATION
  Report Type: 
  Country: None (occurrence: None)
  Receive Date: 20110830
  Receipt Date: 20110822
  Transmission Date: 20111222
  Serious: Yes (Hospitalization)
  Sender: FDA-Public Use
  Company Number: PL-ALLERGAN-1111239US

PATIENT
  Age: 68 Year
  Sex: Female
  Weight: 72 kg

DRUGS (6)
  1. SIMVASTATIN [Suspect]
     Indication: HYPERCHOLESTEROLAEMIA
     Dosage: 20 MG, QD
     Route: 048
     Dates: start: 20080101
  2. AGN 214868 0.02MG PWD (10051X) [Suspect]
     Dosage: UNK
     Dates: start: 20110822, end: 20110822
  3. AGN 214868 0.02MG PWD (10051X) [Suspect]
     Indication: POST HERPETIC NEURALGIA
     Dosage: UNK
     Dates: start: 20110530, end: 20110530
  4. MONONIT [Concomitant]
     Indication: MYOCARDIAL ISCHAEMIA
     Dosage: 100 MG, QD
     Route: 048
     Dates: start: 19950101
  5. AMLODIPINE BESYLATE [Suspect]
     Indication: HYPERTENSION
     Dosage: 5 MG, QD
     Route: 048
     Dates: start: 19950101
  6. VICEBROL FORTE [Concomitant]
     Indication: CEREBROVASCULAR INSUFFICIENCY
     Dosage: 10 MG, BID
     Route: 048
     Dates: start: 20100101

REACTIONS (2)
  - VOMITING [None]
  - DIZZINESS [None]
